FAERS Safety Report 5753909-0 (Version None)
Quarter: 2008Q2

REPORT INFORMATION
  Report Type: 
  Country: None (occurrence: None)
  Receive Date: 20080530
  Receipt Date: 20080521
  Transmission Date: 20081010
  Serious: Yes (Other)
  Sender: FDA-Public Use
  Company Number: B0522430A

PATIENT
  Age: 78 Year
  Sex: Male

DRUGS (7)
  1. ZOPHREN [Suspect]
     Dosage: 8MG CYCLIC
     Route: 042
     Dates: start: 20080327, end: 20080327
  2. ZOPHREN [Suspect]
     Dosage: 8MG CYCLIC
     Route: 048
     Dates: start: 20080327, end: 20080327
  3. FOTEMUSTINE [Suspect]
     Indication: CHEMOTHERAPY
     Dosage: 173MG CYCLIC
     Route: 042
     Dates: start: 20080327, end: 20080327
  4. TAHOR [Suspect]
     Dosage: 20MG PER DAY
     Route: 048
     Dates: start: 20060101
  5. ALDARA [Suspect]
     Indication: MALIGNANT MELANOMA
     Dosage: 1SAC TWICE PER DAY
     Route: 061
     Dates: start: 20080310
  6. DETENSIEL [Suspect]
     Dosage: 5MG PER DAY
     Route: 048
     Dates: start: 20060101
  7. ASPIRIN [Suspect]
     Indication: DRUG USE FOR UNKNOWN INDICATION
     Dosage: 160MG PER DAY
     Route: 048
     Dates: start: 20060101

REACTIONS (6)
  - ASTHENIA [None]
  - CHROMATURIA [None]
  - FAECES PALE [None]
  - HEPATOCELLULAR INJURY [None]
  - JAUNDICE CHOLESTATIC [None]
  - OCULAR ICTERUS [None]
